FAERS Safety Report 6648704-4 (Version None)
Quarter: 2010Q1

REPORT INFORMATION
  Report Type: 
  Country: None (occurrence: None)
  Receive Date: 20100324
  Receipt Date: 20100312
  Transmission Date: 20100710
  Serious: Yes (Other)
  Sender: FDA-Public Use
  Company Number: SE-PFIZER INC-2010032089

PATIENT

DRUGS (1)
  1. CHAMPIX [Suspect]

REACTIONS (3)
  - FEELING HOT [None]
  - HYPOAESTHESIA [None]
  - LIMB DISCOMFORT [None]
